FAERS Safety Report 11698147 (Version 2)
Quarter: 2015Q4

REPORT INFORMATION
  Report Type: Spontaneous
  Country: US (occurrence: US)
  Receive Date: 20151104
  Receipt Date: 20151130
  Transmission Date: 20160304
  Serious: Yes (Death, Hospitalization)
  Sender: FDA-Public Use
  Company Number: US-CELGENEUS-USA-2015108080

PATIENT
  Age: 71 Year
  Sex: Female
  Weight: 92.16 kg

DRUGS (6)
  1. THALOMID [Suspect]
     Active Substance: THALIDOMIDE
     Dosage: 200-100MG
     Route: 048
     Dates: start: 200605
  2. ALKERAN [Concomitant]
     Active Substance: MELPHALAN
     Indication: PRODUCT USED FOR UNKNOWN INDICATION
     Route: 065
     Dates: end: 201505
  3. THALOMID [Suspect]
     Active Substance: THALIDOMIDE
     Indication: PLASMA CELL MYELOMA
     Route: 048
     Dates: start: 200405
  4. THALOMID [Suspect]
     Active Substance: THALIDOMIDE
     Dosage: 200-400MG
     Route: 048
     Dates: start: 200408
  5. THALOMID [Suspect]
     Active Substance: THALIDOMIDE
     Route: 048
     Dates: start: 20150210, end: 201505
  6. THALOMID [Suspect]
     Active Substance: THALIDOMIDE
     Dosage: 200-50MG
     Route: 048
     Dates: start: 200502

REACTIONS (1)
  - Plasma cell myeloma [Fatal]

NARRATIVE: CASE EVENT DATE: 201510
